FAERS Safety Report 17355763 (Version 1)
Quarter: 2020Q1

REPORT INFORMATION
  Report Type: Spontaneous
  Country: DK (occurrence: DK)
  Receive Date: 20200131
  Receipt Date: 20200131
  Transmission Date: 20200409
  Serious: Yes (Hospitalization)
  Sender: FDA-Public Use
  Company Number: DK-MYLANLABS-2020M1011287

PATIENT
  Age: 48 Year
  Sex: Male

DRUGS (3)
  1. NATRIUMKLORID BAXTER [Suspect]
     Active Substance: SODIUM CHLORIDE
     Indication: MEDICATION DILUTION
     Dosage: ENDOSCOPIC INJECTION THERAPY
     Route: 065
  2. EPINEPHRINE. [Suspect]
     Active Substance: EPINEPHRINE
     Indication: DUODENAL ULCER HAEMORRHAGE
     Dosage: ENDOSCOPIC INJECTION THERAPY
     Route: 065
  3. FLUCONAZOLE. [Concomitant]
     Active Substance: FLUCONAZOLE
     Indication: CANDIDA SEPSIS
     Dosage: UNK
     Route: 042

REACTIONS (1)
  - Intestinal haematoma [Recovered/Resolved]
